FAERS Safety Report 17628280 (Version 2)
Quarter: 2022Q1

REPORT INFORMATION
  Report Type: Spontaneous
  Country: PL (occurrence: PL)
  Receive Date: 20200406
  Receipt Date: 20220317
  Transmission Date: 20220423
  Serious: Yes (Other)
  Sender: FDA-Public Use
  Company Number: PL-EMA-DD-20180209-KHAREEVHP-172017

PATIENT
  Age: 19 Year
  Sex: Male

DRUGS (6)
  1. LEVETIRACETAM [Suspect]
     Active Substance: LEVETIRACETAM
     Indication: Psychomotor retardation
     Dosage: 1500 MILLIGRAM, ONCE A DAY
     Route: 065
     Dates: start: 2016
  2. LEVETIRACETAM [Suspect]
     Active Substance: LEVETIRACETAM
     Dosage: UNKNOWN DOSE ADJUSTMENT
     Route: 065
  3. LACOSAMIDE [Suspect]
     Active Substance: LACOSAMIDE
     Indication: Simple partial seizures
     Dosage: 300 MILLIGRAM, ONCE A DAY
     Route: 065
  4. LACOSAMIDE [Suspect]
     Active Substance: LACOSAMIDE
     Dosage: 100 MILLIGRAM, ONCE A DAY
     Route: 065
  5. TIAPRIDE HYDROCHLORIDE [Suspect]
     Active Substance: TIAPRIDE HYDROCHLORIDE
     Indication: Partial seizures
     Dosage: 250 MILLIGRAM, ONCE A DAY
     Route: 065
     Dates: start: 2016
  6. VALPROATE SODIUM [Concomitant]
     Active Substance: VALPROATE SODIUM
     Indication: Partial seizures
     Dosage: 1000 MILLIGRAM, ONCE A DAY ( MAINTAINING SERUM DRUG CONCENTRATION AT 90-100 ?G/ML LEVEL)
     Route: 065
     Dates: start: 2016

REACTIONS (7)
  - Partial seizures [Recovered/Resolved]
  - Loss of consciousness [Unknown]
  - Seizure [Unknown]
  - Drug ineffective [Unknown]
  - Electroencephalogram abnormal [Unknown]
  - Computerised tomogram abnormal [Unknown]
  - Off label use [Unknown]
